FAERS Safety Report 12404291 (Version 2)
Quarter: 2016Q2

REPORT INFORMATION
  Report Type: Report from Study
  Country: NL (occurrence: NL)
  Receive Date: 20160525
  Receipt Date: 20160630
  Transmission Date: 20160815
  Serious: Yes (Other)
  Sender: FDA-Public Use
  Company Number: NL-TEVA-662295ISR

PATIENT
  Sex: Male

DRUGS (3)
  1. GENTAMICIN. [Interacting]
     Active Substance: GENTAMICIN
     Indication: SEPSIS
     Dosage: 4 MG/KG DAILY; 1 DD 48 MG INTRAVENOUSLY (4 MG/KG/D)
     Route: 042
     Dates: start: 19990318, end: 19990328
  2. VANCOMYCIN [Concomitant]
     Active Substance: VANCOMYCIN
     Indication: SEPSIS
     Dosage: 4 DD 120 MG INTRAVENOUSLY
     Route: 042
     Dates: start: 19990314, end: 19990317
  3. CARBOPLATIN. [Suspect]
     Active Substance: CARBOPLATIN
     Indication: CONGENITAL RETINOBLASTOMA

REACTIONS (2)
  - Deafness bilateral [Unknown]
  - Drug interaction [Unknown]

NARRATIVE: CASE EVENT DATE: 20060505
